FAERS Safety Report 17388562 (Version 1)
Quarter: 2020Q1

REPORT INFORMATION
  Report Type: Spontaneous
  Country: US (occurrence: US)
  Receive Date: 20200123
  Receipt Date: 20200123
  Transmission Date: 20200409
  Serious: Yes (Other)
  Sender: FDA-Public Use
  Company Number: None

PATIENT
  Age: 64 Year
  Sex: Female
  Weight: 53.98 kg

DRUGS (2)
  1. METHYTPREDNISOLONE DOSE PACK 4MG [Suspect]
     Active Substance: METHYLPREDNISOLONE
  2. CELESTONE [Suspect]
     Active Substance: BETAMETHASONE

REACTIONS (8)
  - Depression [None]
  - Feeling of despair [None]
  - Decreased appetite [None]
  - Anxiety [None]
  - Asthenia [None]
  - Fear [None]
  - Sciatica [None]
  - Back pain [None]

NARRATIVE: CASE EVENT DATE: 20191231
